FAERS Safety Report 20681055 (Version 1)
Quarter: 2022Q2

REPORT INFORMATION
  Report Type: Report from Study
  Country: US (occurrence: US)
  Receive Date: 20220406
  Receipt Date: 20220406
  Transmission Date: 20220721
  Serious: Yes (Hospitalization)
  Sender: FDA-Public Use
  Company Number: US-PFIZER INC-202200359384

PATIENT
  Age: 68 Year
  Sex: Male
  Weight: 70.295 kg

DRUGS (2)
  1. PREGABALIN [Suspect]
     Active Substance: PREGABALIN
     Indication: Facial pain
     Dosage: 200 MG, 3X/DAY
     Dates: start: 201909
  2. TRAMADOL HCL [Concomitant]
     Active Substance: TRAMADOL HYDROCHLORIDE
     Dosage: UNK
     Dates: start: 2017

REACTIONS (4)
  - Off label use [Unknown]
  - Eye pain [Unknown]
  - Facial pain [Unknown]
  - Pain [Unknown]
